FAERS Safety Report 12568506 (Version 2)
Quarter: 2016Q4

REPORT INFORMATION
  Report Type: Spontaneous
  Country: US (occurrence: US)
  Receive Date: 20160719
  Receipt Date: 20161222
  Transmission Date: 20170207
  Serious: No
  Sender: FDA-Public Use
  Company Number: US-ASTRAZENECA-2016SE59688

PATIENT
  Sex: Male
  Weight: 74.8 kg

DRUGS (2)
  1. TUDORZA PRESSAIR [Suspect]
     Active Substance: ACLIDINIUM BROMIDE
     Indication: DYSPNOEA
     Dosage: 400UG, 1 PUFF TWICE A DAY
     Route: 055
  2. TUDORZA PRESSAIR [Suspect]
     Active Substance: ACLIDINIUM BROMIDE
     Indication: DYSPNOEA
     Dosage: 400UG, 1 PUFF TWICE A DAY
     Route: 055

REACTIONS (4)
  - Off label use [Unknown]
  - Visual acuity reduced [Unknown]
  - Product use issue [Unknown]
  - Memory impairment [Unknown]
